FAERS Safety Report 7176395-5 (Version None)
Quarter: 2010Q4

REPORT INFORMATION
  Report Type: 
  Country: None (occurrence: None)
  Receive Date: 20101215
  Receipt Date: 20101215
  Transmission Date: 20110411
  Serious: Yes (Life-Threatening)
  Sender: FDA-Public Use
  Company Number: None

PATIENT
  Age: 59 Year
  Sex: Female
  Weight: 83.0083 kg

DRUGS (4)
  1. ZICAM NOSE SWABS [Suspect]
     Indication: NASOPHARYNGITIS
     Dosage: USED AS INSTRUCTED ON BOX USED FOR 5 DAYS NASAL
     Route: 045
     Dates: start: 20091009, end: 20091014
  2. ZICAM NOSE SWABS [Suspect]
     Indication: SINUS DISORDER
     Dosage: USED AS INSTRUCTED ON BOX USED FOR 5 DAYS NASAL
     Route: 045
     Dates: start: 20091009, end: 20091014
  3. ZICAL NASAL GEL [Suspect]
     Indication: NASOPHARYNGITIS
     Dosage: USED AS INSTRUCTED ON BOX USED FOR 5 DAYS NASAL
     Route: 045
     Dates: start: 20091009, end: 20091014
  4. ZICAL NASAL GEL [Suspect]
     Indication: SINUS DISORDER
     Dosage: USED AS INSTRUCTED ON BOX USED FOR 5 DAYS NASAL
     Route: 045
     Dates: start: 20091009, end: 20091014

REACTIONS (2)
  - AGEUSIA [None]
  - ANOSMIA [None]
